FAERS Safety Report 12404405 (Version 1)
Quarter: 2016Q2

REPORT INFORMATION
  Report Type: Spontaneous
  Country: AT (occurrence: AT)
  Receive Date: 20160525
  Receipt Date: 20160525
  Transmission Date: 20160815
  Serious: Yes (Death, Other)
  Sender: FDA-Public Use
  Company Number: AT-ELI_LILLY_AND_COMPANY-AT201605007366

PATIENT
  Sex: Male

DRUGS (2)
  1. PACLITAXEL. [Suspect]
     Active Substance: PACLITAXEL
     Indication: GASTRIC CANCER
     Dosage: UNK, UNKNOWN
     Route: 065
  2. RAMUCIRUMAB [Suspect]
     Active Substance: RAMUCIRUMAB
     Indication: GASTRIC CANCER
     Dosage: UNK, UNKNOWN
     Route: 065

REACTIONS (6)
  - Haemorrhage [Fatal]
  - Malignant neoplasm progression [Unknown]
  - Haemorrhage [Unknown]
  - Polyneuropathy [Unknown]
  - Epistaxis [Unknown]
  - Thrombotic thrombocytopenic purpura [Unknown]
